FAERS Safety Report 12410427 (Version 1)
Quarter: 2016Q2

REPORT INFORMATION
  Report Type: Spontaneous
  Country: FR (occurrence: FR)
  Receive Date: 20160527
  Receipt Date: 20160527
  Transmission Date: 20160815
  Serious: Yes (Death)
  Sender: FDA-Public Use
  Company Number: FR-ROCHE-1765088

PATIENT
  Age: 65 Year
  Sex: Male

DRUGS (3)
  1. CELLCEPT [Suspect]
     Active Substance: MYCOPHENOLATE MOFETIL\MYCOPHENOLATE MOFETIL HYDROCHLORIDE
     Indication: MUSCULAR WEAKNESS
     Route: 048
     Dates: start: 2015, end: 20160424
  2. SERETIDE [Suspect]
     Active Substance: FLUTICASONE PROPIONATE\SALMETEROL XINAFOATE
     Indication: PRODUCT USED FOR UNKNOWN INDICATION
     Route: 065
     Dates: end: 201604
  3. SOLUPRED (FRANCE) [Suspect]
     Active Substance: PREDNISOLONE
     Indication: MUSCULAR WEAKNESS
     Route: 048
     Dates: end: 201604

REACTIONS (5)
  - Septic shock [Fatal]
  - Acute respiratory distress syndrome [Fatal]
  - Pneumonia [Fatal]
  - Influenza [Fatal]
  - Fungal infection [Fatal]

NARRATIVE: CASE EVENT DATE: 2016
